FAERS Safety Report 17679114 (Version 1)
Quarter: 2020Q2

REPORT INFORMATION
  Report Type: Spontaneous
  Country: US (occurrence: US)
  Receive Date: 20200417
  Receipt Date: 20200417
  Transmission Date: 20200714
  Serious: No
  Sender: FDA-Public Use
  Company Number: US-MYLANLABS-2020M1036740

PATIENT
  Sex: Male
  Weight: 88 kg

DRUGS (1)
  1. LIDOCAINE PATCH [Suspect]
     Active Substance: LIDOCAINE
     Indication: MUSCLE SWELLING
     Dosage: 1 DOSAGE FORM, QD
     Route: 003

REACTIONS (2)
  - Product adhesion issue [Unknown]
  - Off label use [Not Recovered/Not Resolved]
